FAERS Safety Report 13282002 (Version 1)
Quarter: 2017Q1

REPORT INFORMATION
  Report Type: Spontaneous
  Country: US (occurrence: US)
  Receive Date: 20170301
  Receipt Date: 20170301
  Transmission Date: 20170428
  Serious: Yes (Hospitalization)
  Sender: FDA-Public Use
  Company Number: None

PATIENT

DRUGS (4)
  1. CLINDAMYCIN. [Suspect]
     Active Substance: CLINDAMYCIN
  2. PANTOPRAZOLE [Suspect]
     Active Substance: PANTOPRAZOLE SODIUM
  3. CIPROFLOXACIN. [Suspect]
     Active Substance: CIPROFLOXACIN
  4. NITROFURANTOIN. [Suspect]
     Active Substance: NITROFURANTOIN

REACTIONS (4)
  - Urinary tract infection [None]
  - Urinary tract infection staphylococcal [None]
  - Diarrhoea [None]
  - Haematochezia [None]

NARRATIVE: CASE EVENT DATE: 20150601
